FAERS Safety Report 6492560-4 (Version None)
Quarter: 2009Q4

REPORT INFORMATION
  Report Type: 
  Country: None (occurrence: None)
  Receive Date: 20091208
  Receipt Date: 20091120
  Transmission Date: 20100525
  Serious: Yes (Other)
  Sender: FDA-Public Use
  Company Number: 8055351

PATIENT
  Age: 86 Year
  Sex: Male

DRUGS (4)
  1. PREDNISOLONE (PREDNISOLONE) [Suspect]
     Indication: NON-HODGKIN'S LYMPHOMA
  2. CYCLOPHOSPHAMIDE [Suspect]
     Indication: NON-HODGKIN'S LYMPHOMA
  3. DOXORUBICIN HCL [Suspect]
     Dosage: (82 MG, 1/21 CYCLICAL)
  4. VINCRISTINE [Suspect]

REACTIONS (2)
  - ATRIAL FIBRILLATION [None]
  - CARDIAC FAILURE [None]
